FAERS Safety Report 6251590-8 (Version None)
Quarter: 2009Q2

REPORT INFORMATION
  Report Type: 
  Country: None (occurrence: None)
  Receive Date: 20090630
  Receipt Date: 20090622
  Transmission Date: 20091009
  Serious: Yes (Hospitalization)
  Sender: FDA-Public Use
  Company Number: DE-WYE-H09850909

PATIENT
  Sex: Male

DRUGS (19)
  1. SIROLIMUS [Suspect]
     Indication: PROPHYLAXIS AGAINST TRANSPLANT REJECTION
     Route: 048
     Dates: start: 20031202, end: 20031204
  2. SIROLIMUS [Suspect]
     Route: 048
     Dates: start: 20031205, end: 20031212
  3. SIROLIMUS [Suspect]
     Route: 048
     Dates: start: 20031213, end: 20031224
  4. PREDNISOLONE [Suspect]
     Indication: PROPHYLAXIS AGAINST TRANSPLANT REJECTION
     Dosage: DOSAGE VARIED THROUGHOUT THE STUDY
     Route: 042
     Dates: start: 20031202, end: 20031229
  5. DACLIZUMAB [Suspect]
     Indication: PROPHYLAXIS AGAINST TRANSPLANT REJECTION
     Dosage: 150 MG
     Route: 042
     Dates: start: 20031202
  6. DACLIZUMAB [Suspect]
     Dosage: 75 MG
     Route: 042
     Dates: start: 20031215
  7. DACLIZUMAB [Suspect]
     Dosage: 70 MG
     Route: 042
     Dates: start: 20031229
  8. PREDNISONE TAB [Suspect]
     Indication: PROPHYLAXIS AGAINST TRANSPLANT REJECTION
     Dosage: DOSAGE VARIED THROUGHOUT THE STUDY
     Route: 048
     Dates: start: 20031204
  9. SUPRACOMBIN [Concomitant]
     Dosage: UNSPECIFIED
     Dates: start: 20031206, end: 20031227
  10. BISOPROLOL FUMARATE [Concomitant]
     Dosage: UNSPECIFIED
     Dates: start: 20031205
  11. FELODIPINE [Concomitant]
     Dosage: UNSPECIFIED
     Dates: start: 20031204
  12. FUROSEMIDE INTENSOL [Concomitant]
  13. IMIPENEM AND CILASTATIN SODIUM [Concomitant]
     Dosage: UNSPECIFIED
     Dates: start: 20031217, end: 20040106
  14. PANTOPRAZOLE SODIUM [Concomitant]
     Dosage: UNSPECIFIED
     Dates: start: 20031202
  15. MYCOPHENOLATE MOFETIL [Suspect]
     Indication: PROPHYLAXIS AGAINST TRANSPLANT REJECTION
     Route: 048
     Dates: start: 20031202, end: 20031224
  16. MYCOPHENOLATE MOFETIL [Suspect]
     Route: 048
     Dates: start: 20031225, end: 20040114
  17. MYCOPHENOLATE MOFETIL [Suspect]
     Route: 048
     Dates: start: 20040115, end: 20040116
  18. MYCOPHENOLATE MOFETIL [Suspect]
     Route: 048
     Dates: start: 20040130
  19. TACROLIMUS [Suspect]
     Indication: PROPHYLAXIS AGAINST TRANSPLANT REJECTION
     Dosage: 5 MG ONCE DAILY AND THEN VARIED THROUGHOUT THE STUDY
     Route: 048
     Dates: start: 20031225

REACTIONS (3)
  - DIARRHOEA [None]
  - HYPERCALCAEMIA [None]
  - URINARY TRACT INFECTION PSEUDOMONAL [None]
